FAERS Safety Report 10187649 (Version 1)
Quarter: 2014Q2

REPORT INFORMATION
  Report Type: Spontaneous
  Country: US (occurrence: US)
  Receive Date: 20140522
  Receipt Date: 20140522
  Transmission Date: 20141212
  Serious: No
  Sender: FDA-Public Use
  Company Number: US-SANOFI-AVENTIS-2013SA085707

PATIENT
  Age: 72 Year
  Sex: Male
  Weight: 105 kg

DRUGS (17)
  1. SOLOSTAR [Suspect]
     Indication: TYPE 2 DIABETES MELLITUS
     Dates: start: 2012
  2. SOLOSTAR [Suspect]
     Indication: TYPE 2 DIABETES MELLITUS
     Dates: start: 2012
  3. LANTUS SOLOSTAR [Suspect]
     Indication: TYPE 2 DIABETES MELLITUS
     Dosage: DOSE:60 UNIT(S)
     Route: 051
     Dates: start: 2012
  4. LANTUS SOLOSTAR [Suspect]
     Indication: TYPE 2 DIABETES MELLITUS
     Dosage: DOSE:60 UNIT(S)
     Route: 051
     Dates: start: 2012
  5. FUROSEMIDE [Concomitant]
     Route: 065
  6. TOPROL XL [Concomitant]
     Route: 065
  7. PRAVACHOL [Concomitant]
     Route: 065
  8. TRICOR [Concomitant]
     Route: 065
  9. ZETIA [Concomitant]
     Route: 065
  10. CITALOPRAM [Concomitant]
     Route: 065
  11. GLIPIZIDE [Concomitant]
     Route: 065
  12. SPIRIVA [Concomitant]
     Route: 065
  13. GABAPENTIN [Concomitant]
     Route: 065
  14. GABAPENTIN [Concomitant]
     Route: 065
  15. MULTIVITAMINS [Concomitant]
     Route: 065
  16. ASPIRIN [Concomitant]
     Route: 065
  17. OXYGEN [Concomitant]
     Dosage: DOSE- 2 LITERS, AT NIGHT WITH BIPAP AND DURING DAY AS NEEDED (APPROX X 5 HRS)
     Route: 065

REACTIONS (1)
  - Injection site discomfort [Unknown]
